FAERS Safety Report 5729085-7 (Version None)
Quarter: 2008Q2

REPORT INFORMATION
  Report Type: 
  Country: None (occurrence: None)
  Receive Date: 20080501
  Receipt Date: 20080418
  Transmission Date: 20081010
  Serious: Yes (Hospitalization)
  Sender: FDA-Public Use
  Company Number: 2008-02369

PATIENT
  Age: 2 Year
  Sex: Male

DRUGS (1)
  1. BUPROPION HYDROCHLORIDE [Suspect]
     Indication: ACCIDENTAL EXPOSURE
     Dates: start: 20080127

REACTIONS (2)
  - ACCIDENTAL EXPOSURE [None]
  - VIRAL SKIN INFECTION [None]
